FAERS Safety Report 5229365-8 (Version None)
Quarter: 2007Q1

REPORT INFORMATION
  Report Type: 
  Country: None (occurrence: None)
  Receive Date: 20070124
  Receipt Date: 20070118
  Transmission Date: 20070707
  Serious: Yes (Hospitalization)
  Sender: FDA-Public Use
  Company Number: CART-10470

PATIENT
  Age: 37 Year
  Sex: Male

DRUGS (1)
  1. CARTICEL [Suspect]
     Indication: BONE DISORDER
     Dosage: 1 NA ONCE IS
     Dates: start: 20061219, end: 20061219

REACTIONS (4)
  - DEEP VEIN THROMBOSIS [None]
  - PETECHIAE [None]
  - PULMONARY EMBOLISM [None]
  - RASH [None]
